FAERS Safety Report 7369711-2 (Version None)
Quarter: 2011Q1

REPORT INFORMATION
  Report Type: 
  Country: None (occurrence: None)
  Receive Date: 20110323
  Receipt Date: 20110310
  Transmission Date: 20110831
  Serious: Yes (Hospitalization)
  Sender: FDA-Public Use
  Company Number: PHHY2011ES19864

PATIENT
  Age: 80 Year
  Sex: Female

DRUGS (1)
  1. RISPERIDONE [Suspect]
     Indication: ABNORMAL BEHAVIOUR

REACTIONS (10)
  - AGITATION [None]
  - BODY TEMPERATURE INCREASED [None]
  - CEREBRAL ATROPHY [None]
  - NEUROLEPTIC MALIGNANT SYNDROME [None]
  - HYPERTHERMIA [None]
  - TREMOR [None]
  - GENERAL PHYSICAL HEALTH DETERIORATION [None]
  - HALLUCINATION, VISUAL [None]
  - DEPRESSED LEVEL OF CONSCIOUSNESS [None]
  - GAIT DISTURBANCE [None]
